FAERS Safety Report 16909717 (Version 3)
Quarter: 2019Q4

REPORT INFORMATION
  Report Type: Spontaneous
  Country: AT (occurrence: AT)
  Receive Date: 20191011
  Receipt Date: 20191023
  Transmission Date: 20200122
  Serious: Yes (Other)
  Sender: FDA-Public Use
  Company Number: AT-PFIZER INC-2019425253

PATIENT
  Age: 74 Year
  Sex: Male

DRUGS (8)
  1. PACLITAXEL. [Suspect]
     Active Substance: PACLITAXEL
     Indication: ADENOCARCINOMA PANCREAS
     Dosage: UNK UNK, CYCLIC (FIRST CYCLE DOSE REDUCED TO 80 PERCENT, SECOND CYCLE DOSE ESCALATED TO 100 PERCENT)
     Dates: start: 201511
  2. FLUOROURACIL. [Suspect]
     Active Substance: FLUOROURACIL
     Indication: ADENOCARCINOMA PANCREAS
     Dosage: UNK, EVERY 3 WEEKS
     Dates: start: 201609, end: 201707
  3. GEMCITABINE HYDROCHLORIDE. [Suspect]
     Active Substance: GEMCITABINE HYDROCHLORIDE
     Indication: PANCREATIC CARCINOMA
     Dosage: UNK UNK, CYCLIC (FIRST CYCLE DOSE REDUCED TO 80 PERCENT, SECOND CYCLE DOSE ESCALATED TO 100 PERCENT)
     Dates: start: 201511
  4. FOLIC ACID. [Suspect]
     Active Substance: FOLIC ACID
     Indication: PANCREATIC CARCINOMA
     Dosage: UNK
  5. IRINOTECAN HCL [Suspect]
     Active Substance: IRINOTECAN HYDROCHLORIDE
     Indication: ADENOCARCINOMA PANCREAS
     Dosage: UNK UNK, EVERY 3 WEEKS
     Dates: start: 201609, end: 201707
  6. GEMCITABINE HYDROCHLORIDE. [Suspect]
     Active Substance: GEMCITABINE HYDROCHLORIDE
     Dosage: UNK, CYCLIC (FIRST CYCLE DOSE REDUCED TO 80 PERCENT, SECOND CYCLE DOSE ESCALATED TO 100 PERCENT)
     Dates: end: 201608
  7. LEUCOVORIN [CALCIUM FOLINATE] [Suspect]
     Active Substance: LEUCOVORIN
     Indication: ADENOCARCINOMA PANCREAS
     Dosage: UNK, EVERY 3 WEEKS
     Dates: start: 201609, end: 201707
  8. PACLITAXEL. [Suspect]
     Active Substance: PACLITAXEL
     Dosage: UNK, CYCLIC  (FIRST CYCLE DOSE REDUCED TO 80 PERCENT, SECOND CYCLE DOSE ESCALATED TO 100 PERCENT)
     Dates: end: 201607

REACTIONS (4)
  - Neuropathy peripheral [Unknown]
  - Neoplasm progression [Unknown]
  - Product use in unapproved indication [Unknown]
  - Ascites [Unknown]

NARRATIVE: CASE EVENT DATE: 201605
